FAERS Safety Report 4731989-9 (Version None)
Quarter: 2005Q3

REPORT INFORMATION
  Report Type: 
  Country: None (occurrence: None)
  Receive Date: 20050725
  Receipt Date: 20040802
  Transmission Date: 20060218
  Serious: Yes (Life-Threatening, Disabling)
  Sender: FDA-Public Use
  Company Number: WAES 0408USA00144

PATIENT
  Age: 50 Year
  Sex: Female

DRUGS (2)
  1. VIOXX [Suspect]
     Indication: ABDOMINAL DISCOMFORT
     Dosage: 25 MG/DAILY/PO
     Route: 048
     Dates: start: 20040702, end: 20040730
  2. VIOXX [Suspect]
     Indication: INFLAMMATION
     Dosage: 25 MG/DAILY/PO
     Route: 048
     Dates: start: 20040702, end: 20040730

REACTIONS (2)
  - DRUG INEFFECTIVE [None]
  - HYPERSENSITIVITY [None]
